FAERS Safety Report 9321626 (Version 2)
Quarter: 2013Q3

REPORT INFORMATION
  Report Type: Spontaneous
  Country: US (occurrence: US)
  Receive Date: 20130531
  Receipt Date: 20130705
  Transmission Date: 20140515
  Serious: Yes (Other)
  Sender: FDA-Public Use
  Company Number: US-BAYER-2013-065098

PATIENT
  Age: 38 Year
  Sex: Female
  Weight: 87.53 kg

DRUGS (1)
  1. MIRENA [Suspect]
     Indication: CONTRACEPTION
     Dosage: 20 MCG/24HR, CONT
     Route: 015
     Dates: end: 20120725

REACTIONS (3)
  - Device dislocation [None]
  - Device dislocation [None]
  - Device difficult to use [None]
